FAERS Safety Report 23784709 (Version 1)
Quarter: 2024Q2

REPORT INFORMATION
  Report Type: Spontaneous
  Country: US (occurrence: US)
  Receive Date: 20240425
  Receipt Date: 20240425
  Transmission Date: 20240716
  Serious: No
  Sender: FDA-Public Use
  Company Number: US-PFIZER INC-PV202400052950

PATIENT
  Age: 51 Year
  Sex: Female

DRUGS (1)
  1. XELJANZ XR [Suspect]
     Active Substance: TOFACITINIB CITRATE
     Indication: Rheumatoid arthritis
     Dosage: LAST DOSE ^ABOUT A MONTH AGO^ (MAR2024 APPROXIMATE)
     Route: 048
     Dates: start: 202402, end: 202403

REACTIONS (5)
  - Lethargy [Unknown]
  - Decreased appetite [Unknown]
  - Weight decreased [Unknown]
  - Abdominal pain upper [Unknown]
  - Lower respiratory tract inflammation [Unknown]

NARRATIVE: CASE EVENT DATE: 20240301
